FAERS Safety Report 5925201-2 (Version None)
Quarter: 2008Q4

REPORT INFORMATION
  Report Type: 
  Country: None (occurrence: None)
  Receive Date: 20081021
  Receipt Date: 20081017
  Transmission Date: 20090506
  Serious: Yes (Hospitalization)
  Sender: FDA-Public Use
  Company Number: US-ELI_LILLY_AND_COMPANY-US200810004243

PATIENT
  Sex: Male

DRUGS (6)
  1. HUMALOG [Suspect]
     Dosage: UNK, UNK
     Dates: start: 20030101
  2. TRICOR [Concomitant]
  3. GLUCOPHAGE [Concomitant]
  4. NIASPAN [Concomitant]
  5. LANTUS [Concomitant]
  6. MULTI-VITAMIN [Concomitant]

REACTIONS (2)
  - CARDIAC DISORDER [None]
  - PRODUCT QUALITY ISSUE [None]
